FAERS Safety Report 8440627-3 (Version None)
Quarter: 2012Q2

REPORT INFORMATION
  Report Type: 
  Country: None (occurrence: None)
  Receive Date: 20120615
  Receipt Date: 20120611
  Transmission Date: 20120825
  Serious: Yes (Hospitalization, Other)
  Sender: FDA-Public Use
  Company Number: US-MERCK-0810USA04875

PATIENT
  Age: 64 Year
  Sex: Female
  Weight: 73 kg

DRUGS (7)
  1. FOSAMAX [Suspect]
     Route: 048
     Dates: start: 20020401, end: 20040601
  2. METFORMIN [Concomitant]
     Indication: DIABETES MELLITUS
     Route: 065
     Dates: start: 20050101
  3. FOSAMAX [Suspect]
     Indication: OSTEOPOROSIS
     Route: 048
     Dates: start: 20040805, end: 20080103
  4. LIPITOR [Concomitant]
     Indication: BLOOD CHOLESTEROL
     Route: 065
     Dates: start: 20050101
  5. ADVAIR DISKUS 100/50 [Concomitant]
     Indication: ASTHMA
     Route: 065
     Dates: start: 20050101
  6. GLYBURIDE [Concomitant]
     Indication: DIABETES MELLITUS
     Route: 065
     Dates: start: 20050101
  7. NITROGLYCERIN [Concomitant]
     Indication: ANGINA PECTORIS
     Route: 065
     Dates: start: 20050101

REACTIONS (49)
  - URINARY TRACT INFECTION [None]
  - PHARYNGITIS [None]
  - ANXIETY [None]
  - BONE DISORDER [None]
  - EXOSTOSIS [None]
  - DIARRHOEA [None]
  - RENAL CYST [None]
  - OSTEOMYELITIS [None]
  - PNEUMOTHORAX [None]
  - ABDOMINAL DISTENSION [None]
  - BRONCHITIS [None]
  - TOOTH DISORDER [None]
  - GINGIVITIS [None]
  - TREMOR [None]
  - ORAL DISORDER [None]
  - OSTEONECROSIS OF JAW [None]
  - SUBCUTANEOUS EMPHYSEMA [None]
  - ARTHRITIS [None]
  - TONGUE ULCERATION [None]
  - FATIGUE [None]
  - SINUS HEADACHE [None]
  - VOMITING [None]
  - BLOOD TRIGLYCERIDES INCREASED [None]
  - ORAL INFECTION [None]
  - NERVOUSNESS [None]
  - DYSPNOEA EXERTIONAL [None]
  - ASTHENIA [None]
  - NAUSEA [None]
  - TONSILLAR DISORDER [None]
  - OTITIS MEDIA [None]
  - GASTROOESOPHAGEAL REFLUX DISEASE [None]
  - INSOMNIA [None]
  - FRACTURE [None]
  - FALL [None]
  - RIB FRACTURE [None]
  - BONE LOSS [None]
  - CATARACT [None]
  - DIPLOPIA [None]
  - ANGIOPATHY [None]
  - MUSCLE SPASMS [None]
  - IMPAIRED HEALING [None]
  - GASTROINTESTINAL DISORDER [None]
  - DIZZINESS [None]
  - ACTINOMYCOSIS [None]
  - ACUTE SINUSITIS [None]
  - ANAEMIA [None]
  - WEIGHT DECREASED [None]
  - MYALGIA [None]
  - HEPATIC STEATOSIS [None]
